FAERS Safety Report 5497428-8 (Version None)
Quarter: 2007Q4

REPORT INFORMATION
  Report Type: 
  Country: None (occurrence: None)
  Receive Date: 20071025
  Receipt Date: 20070811
  Transmission Date: 20080405
  Serious: No
  Sender: FDA-Public Use
  Company Number: US-BRISTOL-MYERS SQUIBB COMPANY-13877444

PATIENT

DRUGS (1)
  1. GLUCOPHAGE XR [Suspect]

REACTIONS (2)
  - DYSGEUSIA [None]
  - FOREIGN BODY TRAUMA [None]
